FAERS Safety Report 6605210-0 (Version None)
Quarter: 2010Q1

REPORT INFORMATION
  Report Type: 
  Country: None (occurrence: None)
  Receive Date: 20100226
  Receipt Date: 20100219
  Transmission Date: 20100710
  Serious: Yes (Other)
  Sender: FDA-Public Use
  Company Number: ES-AMGEN-QUU394090

PATIENT
  Sex: Male

DRUGS (2)
  1. NPLATE [Suspect]
     Indication: DRUG USE FOR UNKNOWN INDICATION
  2. RITUXIMAB [Concomitant]

REACTIONS (3)
  - DISCOMFORT [None]
  - PLATELET COUNT DECREASED [None]
  - THERAPEUTIC RESPONSE DECREASED [None]
